FAERS Safety Report 23298727 (Version 2)
Quarter: 2024Q1

REPORT INFORMATION
  Report Type: Report from Study
  Country: HU (occurrence: HU)
  Receive Date: 20231214
  Receipt Date: 20240115
  Transmission Date: 20240410
  Serious: Yes (Hospitalization)
  Sender: FDA-Public Use
  Company Number: HU-ABBVIE-5533485

PATIENT
  Sex: Male

DRUGS (3)
  1. CARBIDOPA\LEVODOPA [Suspect]
     Active Substance: CARBIDOPA\LEVODOPA
     Indication: Parkinson^s disease
     Dosage: MORNING DOSE: 7.5 ML; CONTINUOUS DOSE: 4.5 ML/HOUR; EXTRA DOSE: 2.5 ML
     Route: 050
     Dates: start: 20160428, end: 20240108
  2. CARBIDOPA\LEVODOPA [Suspect]
     Active Substance: CARBIDOPA\LEVODOPA
  3. PANTOPRAZOLE SODIUM [Concomitant]
     Active Substance: PANTOPRAZOLE SODIUM
     Indication: Product used for unknown indication
     Dosage: 1 TABLET AS REQUIRED?FORM STRENGTH 40 MILLIGRAMS
     Route: 065

REACTIONS (4)
  - Altered state of consciousness [Not Recovered/Not Resolved]
  - Delirium [Not Recovered/Not Resolved]
  - Device dislocation [Recovered/Resolved]
  - Consciousness fluctuating [Unknown]

NARRATIVE: CASE EVENT DATE: 20231201
